FAERS Safety Report 6010120-6 (Version None)
Quarter: 2008Q4

REPORT INFORMATION
  Report Type: 
  Country: None (occurrence: None)
  Receive Date: 20081218
  Receipt Date: 20081209
  Transmission Date: 20090506
  Serious: Yes (Hospitalization)
  Sender: FDA-Public Use
  Company Number: JP-WYE-H07163108

PATIENT
  Age: 72 Year
  Sex: Male
  Weight: 57 kg

DRUGS (16)
  1. TAZOCIN [Suspect]
     Indication: DRUG USE FOR UNKNOWN INDICATION
     Dosage: UNKNOWN
     Route: 041
  2. UFT [Suspect]
     Indication: METASTATIC GASTRIC CANCER
     Route: 048
     Dates: start: 20081016, end: 20081016
  3. TOPOTECIN [Suspect]
     Indication: METASTATIC GASTRIC CANCER
     Route: 041
     Dates: start: 20080925, end: 20080925
  4. TOPOTECIN [Suspect]
     Route: 041
     Dates: start: 20081008, end: 20081008
  5. TOPOTECIN [Suspect]
     Route: 041
     Dates: start: 20081022, end: 20081022
  6. CARBENIN [Suspect]
     Indication: DRUG USE FOR UNKNOWN INDICATION
     Route: 041
     Dates: start: 20081015, end: 20081020
  7. DECADRON #1 [Concomitant]
     Indication: ADRENAL INSUFFICIENCY
     Route: 041
     Dates: start: 20081017, end: 20081118
  8. DALACIN-S [Suspect]
     Indication: DRUG USE FOR UNKNOWN INDICATION
     Dosage: UNKNOWN
  9. OMEPRAL [Suspect]
     Indication: DRUG USE FOR UNKNOWN INDICATION
     Dosage: UNKNOWN
  10. INTRALIPID 10% [Suspect]
     Indication: DRUG USE FOR UNKNOWN INDICATION
     Dosage: UNKNOWN
  11. LASIX [Suspect]
     Indication: DRUG USE FOR UNKNOWN INDICATION
     Dosage: UNKNOWN
  12. NEUTROGIN [Suspect]
     Indication: DRUG USE FOR UNKNOWN INDICATION
     Dosage: UNKNOWN
  13. PRODIF [Suspect]
     Indication: DRUG USE FOR UNKNOWN INDICATION
     Dosage: UNKNOWN
  14. TS-1 [Suspect]
     Indication: METASTATIC GASTRIC CANCER
     Route: 048
     Dates: start: 20081008, end: 20081015
  15. TS-1 [Suspect]
     Route: 048
     Dates: start: 20080910, end: 20080923
  16. MEROPEN [Suspect]
     Indication: DRUG USE FOR UNKNOWN INDICATION
     Route: 041
     Dates: start: 20081028, end: 20081104

REACTIONS (1)
  - INTERSTITIAL LUNG DISEASE [None]
